FAERS Safety Report 18498761 (Version 5)
Quarter: 2022Q2

REPORT INFORMATION
  Report Type: Report from Study
  Country: MX (occurrence: MX)
  Receive Date: 20201112
  Receipt Date: 20220517
  Transmission Date: 20220720
  Serious: Yes (Disabling, Other)
  Sender: FDA-Public Use
  Company Number: MX-NOVARTISPH-NVSC2020MX300675

PATIENT
  Sex: Female
  Weight: 56 kg

DRUGS (4)
  1. TASIGNA [Suspect]
     Active Substance: NILOTINIB
     Indication: Chronic myeloid leukaemia
     Dosage: 400 MG, Q12H
     Route: 048
     Dates: start: 2010
  2. TASIGNA [Suspect]
     Active Substance: NILOTINIB
     Dosage: 2 UNIT, Q12H, (IN THE MORNING AND AT NIGHT, 10 YEARS AGO)
     Route: 048
  3. TASIGNA [Suspect]
     Active Substance: NILOTINIB
     Dosage: 1 UNIT, EVERY 12 HOURS
     Route: 048
  4. TASIGNA [Suspect]
     Active Substance: NILOTINIB
     Dosage: UNK UNK, Q12H (2 CAPSULES)
     Route: 048

REACTIONS (37)
  - Blindness unilateral [Not Recovered/Not Resolved]
  - Cataract [Unknown]
  - Ill-defined disorder [Unknown]
  - Skin irritation [Not Recovered/Not Resolved]
  - Musculoskeletal discomfort [Not Recovered/Not Resolved]
  - Venous occlusion [Not Recovered/Not Resolved]
  - Blood glucose decreased [Not Recovered/Not Resolved]
  - Hypoacusis [Not Recovered/Not Resolved]
  - Visual impairment [Unknown]
  - Photophobia [Unknown]
  - Rash [Not Recovered/Not Resolved]
  - Pruritus [Not Recovered/Not Resolved]
  - Dry skin [Not Recovered/Not Resolved]
  - Blood pressure increased [Unknown]
  - Decreased appetite [Unknown]
  - Nausea [Not Recovered/Not Resolved]
  - Weight decreased [Unknown]
  - Diarrhoea [Unknown]
  - Abdominal discomfort [Not Recovered/Not Resolved]
  - Malaise [Unknown]
  - Muscle spasms [Unknown]
  - Vomiting [Not Recovered/Not Resolved]
  - Insomnia [Not Recovered/Not Resolved]
  - Incorrect dose administered [Unknown]
  - Dysstasia [Unknown]
  - Feeding disorder [Unknown]
  - Gastrointestinal inflammation [Unknown]
  - Discomfort [Unknown]
  - Groin pain [Unknown]
  - Productive cough [Unknown]
  - Abdominal pain upper [Unknown]
  - Back pain [Unknown]
  - Neck pain [Unknown]
  - Inflammation [Unknown]
  - Pain in extremity [Unknown]
  - Pain [Unknown]
  - Constipation [Unknown]

NARRATIVE: CASE EVENT DATE: 20100101
